FAERS Safety Report 6350660-3 (Version None)
Quarter: 2009Q3

REPORT INFORMATION
  Report Type: 
  Country: None (occurrence: None)
  Receive Date: 20090911
  Receipt Date: 20090622
  Transmission Date: 20100115
  Serious: No
  Sender: FDA-Public Use
  Company Number: US-ABBOTT-07P-163-0366246-00

PATIENT
  Sex: Male
  Weight: 100 kg

DRUGS (4)
  1. HUMIRA [Suspect]
     Indication: RHEUMATOID ARTHRITIS
     Route: 058
     Dates: start: 20070423
  2. HUMIRA [Suspect]
     Route: 058
     Dates: start: 20060101, end: 20070423
  3. OMEPRAZOLE [Concomitant]
     Indication: GASTROOESOPHAGEAL REFLUX DISEASE
     Route: 048
  4. METHOTREXATE [Concomitant]
     Indication: RHEUMATOID ARTHRITIS
     Route: 048

REACTIONS (1)
  - INCORRECT DOSE ADMINISTERED [None]
